FAERS Safety Report 5147353-7 (Version None)
Quarter: 2006Q4

REPORT INFORMATION
  Report Type: 
  Country: None (occurrence: None)
  Receive Date: 20061103
  Receipt Date: 20061019
  Transmission Date: 20070319
  Serious: Yes (Other)
  Sender: FDA-Public Use
  Company Number: PAR_0885_2006

PATIENT
  Age: 68 Year
  Sex: Male
  Weight: 69.4003 kg

DRUGS (6)
  1. HYDROXYUREA [Suspect]
     Indication: PSORIASIS
     Dosage: 500 MG QDAY PO
     Route: 048
  2. PRILOSEC [Concomitant]
  3. CIALIS [Concomitant]
  4. PERMAX [Concomitant]
  5. HYZAAR [Concomitant]
  6. SYNTHROID [Concomitant]

REACTIONS (6)
  - ANISOCYTOSIS [None]
  - BLOOD BILIRUBIN INCREASED [None]
  - COUGH [None]
  - DIZZINESS [None]
  - DROOLING [None]
  - RED BLOOD CELL COUNT DECREASED [None]
